FAERS Safety Report 23616406 (Version 1)
Quarter: 2024Q1

REPORT INFORMATION
  Report Type: Spontaneous
  Country: US (occurrence: US)
  Receive Date: 20240311
  Receipt Date: 20240311
  Transmission Date: 20240410
  Serious: Yes (Hospitalization)
  Sender: FDA-Public Use
  Company Number: US-DRL-USA-LIT/USA/24/0003926

PATIENT
  Age: 67 Year
  Sex: Male

DRUGS (3)
  1. BORTEZOMIB [Suspect]
     Active Substance: BORTEZOMIB
     Indication: Primary amyloidosis
  2. LENALIDOMIDE [Suspect]
     Active Substance: LENALIDOMIDE
     Indication: Primary amyloidosis
  3. DARATUMUMAB [Suspect]
     Active Substance: DARATUMUMAB
     Indication: Primary amyloidosis

REACTIONS (1)
  - Drug ineffective [Unknown]
